FAERS Safety Report 8772690 (Version 2)
Quarter: 2012Q4

REPORT INFORMATION
  Report Type: 
  Country: CA (occurrence: CA)
  Receive Date: 20120905
  Receipt Date: 20121010
  Transmission Date: 20130627
  Serious: Yes (Other)
  Sender: FDA-Public Use
  Company Number: CA-JNJFOC-20120814979

PATIENT
  Age: 37 Year
  Sex: Female
  Weight: 54.43 kg

DRUGS (1)
  1. NICORETTE GUM 2MG FRESH FRUIT +WHITE [Suspect]
     Indication: SMOKING CESSATION THERAPY
     Dosage: 2 mg gum, 7 pieces a day
     Route: 048

REACTIONS (3)
  - Nicotine dependence [Not Recovered/Not Resolved]
  - Incorrect drug administration duration [Unknown]
  - Product physical issue [Unknown]
